FAERS Safety Report 17065271 (Version 1)
Quarter: 2019Q4

REPORT INFORMATION
  Report Type: Spontaneous
  Country: DE (occurrence: DE)
  Receive Date: 20191122
  Receipt Date: 20191122
  Transmission Date: 20200122
  Serious: Yes (Hospitalization)
  Sender: FDA-Public Use
  Company Number: DE-009507513-1911DEU006806

PATIENT
  Age: 60 Year
  Sex: Female
  Weight: 96 kg

DRUGS (7)
  1. KEYTRUDA [Suspect]
     Active Substance: PEMBROLIZUMAB
     Indication: COLON CANCER METASTATIC
     Dosage: DAILY DOSE: 1 DF DOSAGE FORM EVERY TOTAL
     Route: 042
     Dates: start: 20190912
  2. RAMIPRIL. [Concomitant]
     Active Substance: RAMIPRIL
     Indication: HYPERTENSION
     Dosage: DAILY DOSE: 10 MG MILLGRAM(S) EVERY DAYS; ADMINISTRATION DURATION UNKNOWN
     Route: 048
  3. XARELTO [Concomitant]
     Active Substance: RIVAROXABAN
     Indication: ANTIPHOSPHOLIPID SYNDROME
     Dosage: DAILY DOSE: 15 MG MILLGRAM(S) EVERY DAYS; ADMINISTRATION DURATION UNKNOWN
     Route: 048
  4. NOVALGIN (DIPYRONE) [Concomitant]
     Active Substance: DIPYRONE
     Indication: TUMOUR PAIN
     Dosage: 500 MILLIGRAM; ADMINISTRATION DURATION UNKNOWN, ADMINISTRATION ON REQUEST
     Route: 048
  5. BISOPROLOL HCTAD [Concomitant]
     Indication: HYPERTENSION
     Dosage: DAILY DOSE: 1 DF DOSAGE FORM EVERY DAYS; ADMINISTRATION DURATION UNKNOWN
     Route: 048
  6. PANTOPRAZOLE [Concomitant]
     Active Substance: PANTOPRAZOLE
     Dosage: DAILY DOSE: 40 MG MILLGRAM(S) EVERY DAYS; ADMINISTRATION DURATION UNKNOWN
     Route: 048
  7. SPIRONOLACTONE. [Concomitant]
     Active Substance: SPIRONOLACTONE
     Indication: HYPERTENSION
     Dosage: DAILY DOSE: 25 MG MILLGRAM(S) EVERY DAYS; ADMINISTRATION DURATION UNKNOWN
     Route: 048

REACTIONS (2)
  - Nephritis [Recovering/Resolving]
  - Acute kidney injury [Recovering/Resolving]

NARRATIVE: CASE EVENT DATE: 20190923
